FAERS Safety Report 5677140-2 (Version None)
Quarter: 2008Q1

REPORT INFORMATION
  Report Type: 
  Country: None (occurrence: None)
  Receive Date: 20080318
  Receipt Date: 20080305
  Transmission Date: 20080703
  Serious: No
  Sender: FDA-Public Use
  Company Number: TPA2008A00278

PATIENT
  Age: 79 Year
  Sex: Male
  Weight: 90.7194 kg

DRUGS (5)
  1. ROZEREM [Suspect]
     Indication: MIDDLE INSOMNIA
     Dosage: 8 MG, ONCE, PER ORAL
     Route: 048
     Dates: start: 20080304, end: 20080305
  2. VERAPAMIL [Concomitant]
  3. COZAAR [Concomitant]
  4. LIPITOR [Concomitant]
  5. UNKNOWN CHEMOTHERAPY MEDICATION (OTHER ANTINEOPLASTIC AGENTS) [Concomitant]

REACTIONS (2)
  - EXPIRED DRUG ADMINISTERED [None]
  - INITIAL INSOMNIA [None]
